FAERS Safety Report 8956038 (Version 1)
Quarter: 2012Q4

REPORT INFORMATION
  Report Type: 
  Country: US (occurrence: US)
  Receive Date: 20121210
  Receipt Date: 20121210
  Transmission Date: 20130627
  Serious: Yes (Other)
  Sender: FDA-Public Use
  Company Number: US-PFIZER INC-2012310066

PATIENT
  Age: 54 Year
  Sex: Female
  Weight: 72.56 kg

DRUGS (7)
  1. EFFEXOR XR [Suspect]
     Indication: DEPRESSION
     Dosage: UNK, 2x/day
     Route: 048
  2. LEVOTHYROXINE [Concomitant]
     Dosage: two 88mcg twice a day.
  3. LOVASTATIN [Concomitant]
     Indication: BLOOD CHOLESTEROL ABNORMAL
     Dosage: 20 mg, 1x/day
  4. BUPROPION [Concomitant]
     Dosage: 150 mg, 1x/day
  5. ATENOLOL/CHLORTHALIDONE [Concomitant]
     Indication: BLOOD PRESSURE HIGH
     Dosage: 50/25 mg, UNK
  6. AMITRIPTYLINE [Concomitant]
     Dosage: 50 mg, 1x/day
  7. CLONAZEPAM [Concomitant]
     Dosage: 0.5 mg, 2x/day

REACTIONS (1)
  - Cervix carcinoma [Recovering/Resolving]
